FAERS Safety Report 15258976 (Version 1)
Quarter: 2018Q3

REPORT INFORMATION
  Report Type: Spontaneous
  Country: US (occurrence: US)
  Receive Date: 20180809
  Receipt Date: 20180809
  Transmission Date: 20181010
  Serious: No
  Sender: FDA-Public Use
  Company Number: US-BAYER-2018-149502

PATIENT
  Sex: Female

DRUGS (1)
  1. MIRALAX [Suspect]
     Active Substance: POLYETHYLENE GLYCOL 3350
     Dosage: 1 TABLESPOON DAILY
     Route: 048

REACTIONS (5)
  - Incorrect dosage administered [Unknown]
  - Frequent bowel movements [None]
  - Constipation [Unknown]
  - Product prescribing issue [Unknown]
  - Gastrointestinal motility disorder [None]
